FAERS Safety Report 16292424 (Version 3)
Quarter: 2019Q2

REPORT INFORMATION
  Report Type: Spontaneous
  Country: US (occurrence: US)
  Receive Date: 20190509
  Receipt Date: 20190611
  Transmission Date: 20190711
  Serious: Yes (Other)
  Sender: FDA-Public Use
  Company Number: US-PFIZER INC-2019196285

PATIENT
  Sex: Female

DRUGS (12)
  1. PRILOSEC [Suspect]
     Active Substance: OMEPRAZOLE MAGNESIUM
     Dosage: UNK
     Dates: start: 2011, end: 2015
  2. PRILOSEC OTC [Suspect]
     Active Substance: OMEPRAZOLE MAGNESIUM
     Indication: GASTROOESOPHAGEAL REFLUX DISEASE
     Dosage: 20 MG, UNK
     Dates: start: 2002, end: 2014
  3. PRILOSEC OTC [Suspect]
     Active Substance: OMEPRAZOLE MAGNESIUM
     Dosage: UNK
     Dates: start: 2011, end: 2015
  4. PREVACID [Suspect]
     Active Substance: LANSOPRAZOLE
     Dosage: UNK
     Dates: start: 2011, end: 2015
  5. LOSARTAN. [Concomitant]
     Active Substance: LOSARTAN
     Indication: BLOOD PRESSURE ABNORMAL
     Dosage: UNK
     Dates: start: 2015, end: 2017
  6. ACETAMINOPHEN. [Concomitant]
     Active Substance: ACETAMINOPHEN
     Indication: PAIN
     Dosage: UNK
  7. DEXILANT [Suspect]
     Active Substance: DEXLANSOPRAZOLE
     Dosage: UNK
     Dates: start: 2011, end: 2015
  8. NEXIUM [Suspect]
     Active Substance: ESOMEPRAZOLE MAGNESIUM
     Dosage: UNK
     Dates: start: 2011, end: 2015
  9. NEXIUM 24HR [Suspect]
     Active Substance: ESOMEPRAZOLE MAGNESIUM
     Dosage: UNK
     Dates: end: 2015
  10. PREVACID 24 HR [Suspect]
     Active Substance: LANSOPRAZOLE
     Dosage: UNK
     Dates: start: 2011, end: 2015
  11. NAPROXEN. [Concomitant]
     Active Substance: NAPROXEN
     Indication: PAIN
     Dosage: UNK
     Dates: start: 201901, end: 201902
  12. PROTONIX [Suspect]
     Active Substance: PANTOPRAZOLE SODIUM
     Dosage: UNK
     Dates: start: 2011, end: 2015

REACTIONS (1)
  - Chronic kidney disease [Not Recovered/Not Resolved]
